FAERS Safety Report 5359498-7 (Version None)
Quarter: 2007Q2

REPORT INFORMATION
  Report Type: 
  Country: None (occurrence: None)
  Receive Date: 20070615
  Receipt Date: 20070605
  Transmission Date: 20071010
  Serious: Yes (Other)
  Sender: FDA-Public Use
  Company Number: JP-PFIZER INC-2007046701

PATIENT
  Age: 3 Year
  Sex: Male

DRUGS (4)
  1. ZITHROMAC [Suspect]
     Dosage: DAILY DOSE:150MG
     Route: 048
     Dates: start: 20070516, end: 20070517
  2. ZESULAN [Suspect]
     Dosage: DAILY DOSE:3.6MG
     Route: 048
     Dates: start: 20070514, end: 20070517
  3. MEPTIN [Suspect]
     Dosage: DAILY DOSE:35MCG
     Route: 048
     Dates: start: 20070514, end: 20070517
  4. MUCODYNE [Suspect]
     Dosage: DAILY DOSE:450MG
     Route: 048
     Dates: start: 20070514, end: 20070517

REACTIONS (1)
  - COMA [None]
